FAERS Safety Report 23044139 (Version 1)
Quarter: 2023Q4

REPORT INFORMATION
  Report Type: Spontaneous
  Country: US (occurrence: US)
  Receive Date: 20231009
  Receipt Date: 20231009
  Transmission Date: 20240109
  Serious: No
  Sender: FDA-Public Use
  Company Number: US-BRISTOL-MYERS SQUIBB COMPANY-2023-141399

PATIENT
  Age: 59 Year
  Sex: Female

DRUGS (2)
  1. THALIDOMIDE [Suspect]
     Active Substance: THALIDOMIDE
     Indication: Chronic cutaneous lupus erythematosus
  2. THALIDOMIDE [Suspect]
     Active Substance: THALIDOMIDE

REACTIONS (2)
  - Tremor [Unknown]
  - Off label use [Unknown]
